FAERS Safety Report 16354363 (Version 2)
Quarter: 2019Q2

REPORT INFORMATION
  Report Type: Report from Study
  Country: US (occurrence: US)
  Receive Date: 20190524
  Receipt Date: 20190531
  Transmission Date: 20190711
  Serious: Yes (Other)
  Sender: FDA-Public Use
  Company Number: US-TEVA-2019-US-1053158

PATIENT
  Sex: Female

DRUGS (3)
  1. CLARAVIS [Suspect]
     Active Substance: ISOTRETINOIN
     Dosage: 60 MILLIGRAM DAILY;
     Dates: start: 20181115, end: 20190414
  2. CLARAVIS [Suspect]
     Active Substance: ISOTRETINOIN
     Dosage: 100 MILLIGRAM DAILY;
     Route: 065
     Dates: start: 20181115, end: 20190414
  3. CLARAVIS [Suspect]
     Active Substance: ISOTRETINOIN
     Dosage: FORM STRENGTH: 100, UNIT NOT REPORTED
     Route: 065

REACTIONS (1)
  - Unintended pregnancy [Unknown]
